FAERS Safety Report 25577136 (Version 1)
Quarter: 2025Q3

REPORT INFORMATION
  Report Type: Report from Study
  Country: US (occurrence: US)
  Receive Date: 20250718
  Receipt Date: 20250718
  Transmission Date: 20251020
  Serious: Yes (Disabling)
  Sender: GILEAD
  Company Number: US-GILEAD-2025-0721191

PATIENT
  Sex: Male

DRUGS (3)
  1. AZTREONAM LYSINE [Suspect]
     Active Substance: AZTREONAM LYSINE
     Indication: Cystic fibrosis
     Dosage: 75MG INHILATION 3 TIMES A DAY FOR 28 DAYS ON AND 28 DAYS OFF
     Route: 055
     Dates: start: 20221028
  2. AZTREONAM LYSINE [Suspect]
     Active Substance: AZTREONAM LYSINE
     Indication: Bacterial disease carrier
  3. TRIKAFTA [Suspect]
     Active Substance: ELEXACAFTOR\IVACAFTOR\TEZACAFTOR
     Indication: Cystic fibrosis
     Dosage: TAKE 1 ORANGE PACKET BY MOUTH IN THE MORNING AND 1 PINK PACKET IN THE EVENING
     Route: 048
     Dates: start: 20241121

REACTIONS (1)
  - Emotional disorder [Unknown]
